FAERS Safety Report 5859176-1 (Version None)
Quarter: 2008Q3

REPORT INFORMATION
  Report Type: 
  Country: None (occurrence: None)
  Receive Date: 20080825
  Receipt Date: 20080812
  Transmission Date: 20090109
  Serious: Yes (Disabling)
  Sender: FDA-Public Use
  Company Number: 2008VX001632

PATIENT
  Age: 65 Year
  Sex: Male

DRUGS (3)
  1. PERMAX [Suspect]
     Indication: PARKINSON'S DISEASE
     Dosage: 100 UG QD PO
     Route: 048
     Dates: start: 20060801, end: 20070901
  2. L-DOPA [Concomitant]
  3. L-DIHYDROXYPHENYLSERINE [Concomitant]

REACTIONS (3)
  - BACK PAIN [None]
  - DRUG EFFECT DECREASED [None]
  - POSTURE ABNORMAL [None]
